FAERS Safety Report 5727211-7 (Version None)
Quarter: 2008Q2

REPORT INFORMATION
  Report Type: 
  Country: None (occurrence: None)
  Receive Date: 20080501
  Receipt Date: 20070314
  Transmission Date: 20081010
  Serious: Yes (Hospitalization)
  Sender: FDA-Public Use
  Company Number: PHEH2007US02760

PATIENT
  Age: 63 Year
  Sex: Female
  Weight: 102.9 kg

DRUGS (10)
  1. LOTREL [Suspect]
     Indication: HYPERTENSION
     Dosage: 5/40MG, QD, ORAL
     Route: 048
     Dates: start: 20070131, end: 20070227
  2. SYNTHROID [Concomitant]
  3. DARVOCET-N 100 [Concomitant]
  4. DIOVAN [Concomitant]
  5. GLUCOPHAGE [Concomitant]
  6. LASIX [Concomitant]
  7. LIPITOR [Concomitant]
  8. MICRONASE [Concomitant]
  9. POTASSIUM (POTASSIUM) [Concomitant]
  10. ZOLOFT [Concomitant]

REACTIONS (6)
  - ABDOMINAL PAIN [None]
  - BLOOD ALKALINE PHOSPHATASE INCREASED [None]
  - BLOOD CREATININE INCREASED [None]
  - BLOOD UREA INCREASED [None]
  - LIPASE INCREASED [None]
  - PANCREATITIS [None]
